FAERS Safety Report 8004191-5 (Version None)
Quarter: 2011Q4

REPORT INFORMATION
  Report Type: 
  Country: None (occurrence: None)
  Receive Date: 20111223
  Receipt Date: 20111215
  Transmission Date: 20120403
  Serious: Yes (Hospitalization)
  Sender: FDA-Public Use
  Company Number: US-BIOGENIDEC-2011BI042612

PATIENT
  Age: 64 Year
  Sex: Female

DRUGS (4)
  1. AVONEX [Suspect]
     Route: 030
     Dates: start: 20040101
  2. LEVOTHYROXINE SODIUM [Concomitant]
  3. AVONEX [Suspect]
     Indication: MULTIPLE SCLEROSIS
     Route: 030
     Dates: start: 20040801
  4. LEVOTHYROXINE SODIUM [Concomitant]
     Dates: start: 20110101

REACTIONS (2)
  - HYPOKALAEMIA [None]
  - HYPERTENSION [None]
